FAERS Safety Report 21961849 (Version 1)
Quarter: 2023Q1

REPORT INFORMATION
  Report Type: Spontaneous
  Country: JP (occurrence: JP)
  Receive Date: 20230207
  Receipt Date: 20230207
  Transmission Date: 20230417
  Serious: Yes (Other)
  Sender: FDA-Public Use
  Company Number: JP-GILEAD-2023-0614210

PATIENT
  Age: 86 Year
  Sex: Female

DRUGS (2)
  1. VEKLURY [Suspect]
     Active Substance: REMDESIVIR
     Indication: Coronavirus pneumonia
     Dosage: UNK
     Route: 041
     Dates: start: 20230118, end: 20230122
  2. VEKLURY [Suspect]
     Active Substance: REMDESIVIR
     Dosage: UNK
     Route: 041
     Dates: start: 20230126, end: 20230130

REACTIONS (3)
  - Coronavirus pneumonia [Not Recovered/Not Resolved]
  - C-reactive protein increased [Unknown]
  - Pyrexia [Unknown]

NARRATIVE: CASE EVENT DATE: 20230125
